FAERS Safety Report 7941362-8 (Version None)
Quarter: 2011Q4

REPORT INFORMATION
  Report Type: 
  Country: None (occurrence: None)
  Receive Date: 20111128
  Receipt Date: 20111118
  Transmission Date: 20120403
  Serious: Yes (Hospitalization)
  Sender: FDA-Public Use
  Company Number: JP-BAYER-200910899BYL

PATIENT
  Age: 47 Year
  Sex: Male
  Weight: 51 kg

DRUGS (12)
  1. NEXAVAR [Suspect]
     Dosage: 400 MG (DAILY DOSE), , ORAL
     Route: 048
     Dates: start: 20090724, end: 20090909
  2. ONEALFA [Concomitant]
     Dosage: 0.5 ?G (DAILY DOSE), , ORAL
     Route: 048
     Dates: start: 20090216
  3. OXYCONTIN [Concomitant]
     Dosage: 20 MG (DAILY DOSE), , ORAL
     Route: 048
     Dates: start: 20090216, end: 20100820
  4. NEXAVAR [Suspect]
     Dosage: 400 MG (DAILY DOSE), , ORAL
     Route: 048
     Dates: start: 20090309
  5. OMEPRAZOLE [Concomitant]
     Indication: GASTRITIS PROPHYLAXIS
     Dosage: 10 MG (DAILY DOSE), , ORAL
     Route: 048
     Dates: start: 20090216
  6. LEVOTHYROXINE SODIUM [Concomitant]
     Dosage: 50 ?G (DAILY DOSE), , ORAL
     Route: 048
     Dates: start: 20090216
  7. LEVOTHYROXINE SODIUM [Concomitant]
     Dosage: DAILY DOSE 100 ?G
     Route: 048
     Dates: start: 20090307
  8. NEXAVAR [Suspect]
     Indication: RENAL CELL CARCINOMA
     Dosage: 400 MG (DAILY DOSE), , ORAL
     Route: 048
     Dates: start: 20090216, end: 20090227
  9. NEXAVAR [Suspect]
     Dosage: 400 MG (DAILY DOSE), , ORAL
     Route: 048
     Dates: start: 20090523, end: 20090604
  10. NEXAVAR [Suspect]
     Dosage: 800 MG (DAILY DOSE), , ORAL
     Route: 048
     Dates: start: 20090910
  11. NEXAVAR [Suspect]
     Dosage: 800 MG (DAILY DOSE), , ORAL
     Route: 048
     Dates: start: 20090605, end: 20090723
  12. ONEALFA [Concomitant]
     Dosage: DAILY DOSE 2 ?G
     Route: 048
     Dates: start: 20090307

REACTIONS (8)
  - DIARRHOEA [None]
  - GAMMA-GLUTAMYLTRANSFERASE INCREASED [None]
  - BLOOD ALKALINE PHOSPHATASE INCREASED [None]
  - HYPERURICAEMIA [None]
  - CONSTIPATION [None]
  - C-REACTIVE PROTEIN INCREASED [None]
  - PYREXIA [None]
  - BLOOD LACTATE DEHYDROGENASE INCREASED [None]
